FAERS Safety Report 21910462 (Version 2)
Quarter: 2023Q1

REPORT INFORMATION
  Report Type: Spontaneous
  Country: PT (occurrence: PT)
  Receive Date: 20230125
  Receipt Date: 20230206
  Transmission Date: 20230417
  Serious: Yes (Hospitalization, Other)
  Sender: FDA-Public Use
  Company Number: PT-BAYER-2022P029571

PATIENT
  Age: 51 Year
  Sex: Female

DRUGS (4)
  1. CIPROFLOXACIN [Suspect]
     Active Substance: CIPROFLOXACIN
     Indication: Colitis ischaemic
     Dosage: UNK
     Route: 065
  2. METRONIDAZOLE [Concomitant]
     Active Substance: METRONIDAZOLE
     Indication: Colitis ischaemic
     Dosage: UNK
     Route: 065
  3. MESALAMINE [Concomitant]
     Active Substance: MESALAMINE
     Indication: Colitis ischaemic
     Dosage: 3 GRAM, QD
     Route: 048
  4. MESALAMINE [Concomitant]
     Active Substance: MESALAMINE
     Dosage: 4 GRAM, QD,ORAL AND AS ENEMA
     Route: 048

REACTIONS (5)
  - Colitis ulcerative [Recovered/Resolved]
  - Clostridium test positive [Recovered/Resolved]
  - Clostridium difficile colitis [Recovered/Resolved]
  - Clostridium difficile infection [Unknown]
  - Condition aggravated [Unknown]
